FAERS Safety Report 7061244-6 (Version None)
Quarter: 2010Q4

REPORT INFORMATION
  Report Type: 
  Country: None (occurrence: None)
  Receive Date: 20101026
  Receipt Date: 20101020
  Transmission Date: 20110411
  Serious: No
  Sender: FDA-Public Use
  Company Number: US-PFIZER INC-2010133942

PATIENT
  Sex: Female

DRUGS (1)
  1. ESTROPIPATE [Suspect]

REACTIONS (4)
  - DRUG EFFECT DECREASED [None]
  - ERYTHEMA [None]
  - PRURITUS [None]
  - URTICARIA [None]
